FAERS Safety Report 6440454-2 (Version None)
Quarter: 2009Q4

REPORT INFORMATION
  Report Type: 
  Country: None (occurrence: None)
  Receive Date: 20091113
  Receipt Date: 20091105
  Transmission Date: 20100525
  Serious: Yes (Hospitalization)
  Sender: FDA-Public Use
  Company Number: FR-ABBOTT-09P-056-0607089-00

PATIENT
  Age: 77 Year
  Sex: Male

DRUGS (3)
  1. DEPAKENE [Suspect]
     Indication: CONVULSION
     Route: 048
     Dates: start: 20020101, end: 20090315
  2. DEPAKENE [Interacting]
     Route: 048
     Dates: start: 20090415, end: 20090801
  3. OLMETEC [Concomitant]
     Indication: HYPERTENSION
     Route: 048

REACTIONS (5)
  - DYSPNOEA [None]
  - EOSINOPHILIA [None]
  - INFLAMMATION [None]
  - PLEURAL EFFUSION [None]
  - PULMONARY EOSINOPHILIA [None]
